FAERS Safety Report 14292331 (Version 1)
Quarter: 2017Q4

REPORT INFORMATION
  Report Type: Spontaneous
  Country: FR (occurrence: FR)
  Receive Date: 20171215
  Receipt Date: 20171215
  Transmission Date: 20180321
  Serious: Yes (Hospitalization)
  Sender: FDA-Public Use
  Company Number: FR-009507513-1712FRA005794

PATIENT
  Age: 68 Year
  Sex: Male
  Weight: 102 kg

DRUGS (13)
  1. KARDEGIC [Concomitant]
     Active Substance: ASPIRIN DL-LYSINE
  2. BISOCE [Concomitant]
     Active Substance: BISOPROLOL
  3. LANTUS [Suspect]
     Active Substance: INSULIN GLARGINE
     Indication: TYPE 2 DIABETES MELLITUS
     Dosage: 125 IU, QD
     Route: 058
     Dates: end: 20170617
  4. LOVENOX [Concomitant]
     Active Substance: ENOXAPARIN SODIUM
  5. ATORVASTATIN CALCIUM. [Concomitant]
     Active Substance: ATORVASTATIN CALCIUM
  6. METFORMIN [Concomitant]
     Active Substance: METFORMIN HYDROCHLORIDE
  7. DIFFU-K [Concomitant]
     Active Substance: POTASSIUM CHLORIDE
  8. LERCANIDIPINE [Concomitant]
     Active Substance: LERCANIDIPINE
  9. JANUVIA [Suspect]
     Active Substance: SITAGLIPTIN PHOSPHATE
     Indication: TYPE 2 DIABETES MELLITUS
     Dosage: 100 MG, QD
     Route: 048
     Dates: end: 20170623
  10. NOVO-NORM [Suspect]
     Active Substance: REPAGLINIDE
     Indication: TYPE 2 DIABETES MELLITUS
     Dosage: 6 MG, QD
     Route: 048
     Dates: end: 20170617
  11. IMOVANE [Concomitant]
     Active Substance: ZOPICLONE
  12. ZYLORIC [Concomitant]
     Active Substance: ALLOPURINOL
  13. VALSARTAN. [Concomitant]
     Active Substance: VALSARTAN

REACTIONS (3)
  - Malaise [Recovered/Resolved]
  - Hypoglycaemia [Recovered/Resolved]
  - Fall [Recovered/Resolved]

NARRATIVE: CASE EVENT DATE: 20170611
